FAERS Safety Report 10516552 (Version 1)
Quarter: 2014Q4

REPORT INFORMATION
  Report Type: Spontaneous
  Country: US (occurrence: None)
  Receive Date: 20141003
  Receipt Date: 20141003
  Transmission Date: 20150528
  Serious: Yes (Hospitalization)
  Sender: FDA-Public Use
  Company Number: 1402519

PATIENT
  Age: 46 Year
  Sex: Male

DRUGS (3)
  1. RIBAVIRIN (RIBAVIRIN) [Suspect]
     Active Substance: RIBAVIRIN
     Indication: CHRONIC HEPATITIS C
     Dosage: 2 DIVIDED DOSES
     Route: 048
     Dates: start: 20140327
  2. PEG-INTERFERON ALFA 2A [Suspect]
     Active Substance: PEGINTERFERON ALFA-2A
     Indication: CHRONIC HEPATITIS C
     Dosage: 1 IN 1 WK
     Route: 058
     Dates: start: 20140327
  3. SOVALDI [Suspect]
     Active Substance: SOFOSBUVIR
     Indication: CHRONIC HEPATITIS C
     Dosage: 400 MG 1 IN 1 D
     Route: 048
     Dates: start: 20140327

REACTIONS (4)
  - Anaemia [None]
  - Suicide attempt [None]
  - Pain in extremity [None]
  - Incontinence [None]
